FAERS Safety Report 16110908 (Version 1)
Quarter: 2019Q1

REPORT INFORMATION
  Report Type: Report from Study
  Country: US (occurrence: US)
  Receive Date: 20190325
  Receipt Date: 20190325
  Transmission Date: 20190418
  Serious: Yes (Other)
  Sender: FDA-Public Use
  Company Number: US-INCYTE CORPORATION-2019IN002667

PATIENT

DRUGS (1)
  1. JAKAFI [Suspect]
     Active Substance: RUXOLITINIB
     Indication: MYELOFIBROSIS
     Dosage: 7 MG, BID
     Route: 065

REACTIONS (4)
  - Haemoglobin abnormal [Unknown]
  - Incorrect dose administered [Unknown]
  - Myelofibrosis [Unknown]
  - Platelet count abnormal [Unknown]
